FAERS Safety Report 21096714 (Version 8)
Quarter: 2023Q2

REPORT INFORMATION
  Report Type: Spontaneous
  Country: JP (occurrence: JP)
  Receive Date: 20220718
  Receipt Date: 20230503
  Transmission Date: 20230722
  Serious: Yes (Hospitalization)
  Sender: FDA-Public Use
  Company Number: JP-Eisai-202204483_LEN_P_1

PATIENT
  Age: 72 Year
  Sex: Male
  Weight: 75 kg

DRUGS (17)
  1. LENVIMA [Suspect]
     Active Substance: LENVATINIB
     Indication: Thyroid cancer
     Dosage: 5 DAYS ON AND 2 DAYS OFF
     Route: 048
     Dates: start: 20220114, end: 20220610
  2. LENVIMA [Suspect]
     Active Substance: LENVATINIB
     Dosage: 5 DAYS ON AND 2 DAYS OFF
     Route: 048
     Dates: start: 20220819, end: 20221013
  3. LENVIMA [Suspect]
     Active Substance: LENVATINIB
     Dosage: 5 DAYS ON AND 2 DAYS OFF
     Route: 048
     Dates: start: 20221014, end: 20230115
  4. LENVIMA [Suspect]
     Active Substance: LENVATINIB
     Dosage: 5 DAYS ON AND 2 DAYS OFF
     Route: 048
     Dates: start: 20230116
  5. ALLOPURINOL [Concomitant]
     Active Substance: ALLOPURINOL
     Indication: Product used for unknown indication
     Dosage: QAM
     Route: 048
  6. AMLODIPINE [Concomitant]
     Active Substance: AMLODIPINE BESYLATE
     Indication: Product used for unknown indication
     Dosage: QAM
     Route: 048
  7. METFORMIN HYDROCHLORIDE [Concomitant]
     Active Substance: METFORMIN HYDROCHLORIDE
     Indication: Product used for unknown indication
     Dosage: AFTER BREAKFAST AND DINNER
     Route: 048
  8. TELMISARTAN [Concomitant]
     Active Substance: TELMISARTAN
     Indication: Product used for unknown indication
     Dosage: AFTER BREAKFAST AND DINNER
     Route: 048
  9. MINIPRESS [Concomitant]
     Active Substance: PRAZOSIN HYDROCHLORIDE
     Indication: Product used for unknown indication
     Dosage: QPM
     Route: 048
  10. LOXOPROFEN SODIUM DIHYDRATE [Concomitant]
     Active Substance: LOXOPROFEN SODIUM DIHYDRATE
     Indication: Product used for unknown indication
     Dosage: DOSE AND FREQUENCY UNKNOWN
     Route: 062
  11. HEMOPORISON [Concomitant]
     Indication: Product used for unknown indication
     Dosage: DOSE AND FREQUENCY UNKNOWN
  12. MAGNESIUM OXIDE [Concomitant]
     Active Substance: MAGNESIUM OXIDE
     Indication: Product used for unknown indication
     Dosage: AFTER MEALS
     Route: 048
  13. TRIMEBUTINE [Concomitant]
     Active Substance: TRIMEBUTINE
     Indication: Product used for unknown indication
     Dosage: AFTER MEALS
     Route: 048
  14. HEPARINOID [Concomitant]
     Indication: Product used for unknown indication
     Dosage: DOSE UNKNOWN
     Route: 061
  15. LEVOTHYROXINE [Concomitant]
     Active Substance: LEVOTHYROXINE
     Indication: Product used for unknown indication
     Dosage: QAM
     Route: 048
  16. LEVOTHYROXINE [Concomitant]
     Active Substance: LEVOTHYROXINE
     Dosage: QAM
     Route: 048
  17. LEVOTHYROXINE [Concomitant]
     Active Substance: LEVOTHYROXINE
     Dosage: QAM
     Route: 048

REACTIONS (2)
  - Duodenal ulcer [Recovered/Resolved]
  - Haemorrhage [Recovered/Resolved]

NARRATIVE: CASE EVENT DATE: 20220530
